FAERS Safety Report 7917651-X (Version None)
Quarter: 2011Q4

REPORT INFORMATION
  Report Type: 
  Country: None (occurrence: None)
  Receive Date: 20111116
  Receipt Date: 20111109
  Transmission Date: 20120403
  Serious: Yes (Hospitalization)
  Sender: FDA-Public Use
  Company Number: US-SANOFI-AVENTIS-2011SA074130

PATIENT
  Age: 74 Year
  Sex: Female
  Weight: 78.9 kg

DRUGS (29)
  1. TADALAFIL [Suspect]
     Indication: PULMONARY ARTERIAL HYPERTENSION
     Dates: start: 20110921
  2. CELECOXIB [Suspect]
     Dates: start: 20110610
  3. ESOMEPRAZOLE [Concomitant]
     Dates: start: 20110610
  4. PROZAC [Concomitant]
     Indication: DEPRESSION
     Dates: start: 20060101
  5. CALCIUM PHOSPHATE [Concomitant]
     Dates: start: 20080101
  6. AMLODIPINE [Concomitant]
     Indication: HYPERTENSION
     Dates: start: 20110602
  7. BENICAR [Concomitant]
     Indication: HYPERTENSION
     Dates: start: 20110602, end: 20110923
  8. LASIX [Suspect]
     Dates: start: 20110810
  9. POTASSIUM CHLORIDE [Concomitant]
     Dates: start: 20080101
  10. CARVEDILOL [Concomitant]
     Indication: ATRIAL FIBRILLATION
     Dates: start: 20060101
  11. ERGOCALCIFEROL [Concomitant]
     Dates: start: 20080101
  12. PLACEBO [Suspect]
     Dates: start: 20110610
  13. NAPROXEN [Suspect]
     Indication: OSTEOARTHRITIS
     Dates: start: 20110610
  14. PLACEBO [Suspect]
     Indication: OSTEOARTHRITIS
     Dates: start: 20110610
  15. PRAVASTATIN [Concomitant]
     Dates: start: 20080101
  16. PYRIDOXINE HYDROCHLORIDE [Concomitant]
     Dates: start: 20090101
  17. RIBOFLAVIN [Concomitant]
     Dates: start: 20090101
  18. THIAMINE HYDROCHLORIDE [Concomitant]
     Dates: start: 20090101
  19. CELECOXIB [Suspect]
     Indication: OSTEOARTHRITIS
     Dates: start: 20110610
  20. TOCOPHEROL CONCENTRATE CAP [Concomitant]
     Dates: start: 20080101
  21. CALCIUM SODIUM LACTATE [Concomitant]
     Dates: start: 20080101
  22. FISH OIL [Concomitant]
     Dates: start: 20080101
  23. IBUPROFEN [Suspect]
     Dates: start: 20110610
  24. M20 [Concomitant]
  25. NAPROXEN [Suspect]
     Dates: start: 20110610
  26. CALCIUM PANTOTHENATE [Concomitant]
     Dates: start: 20090101
  27. NICOTINAMIDE [Concomitant]
     Dates: start: 20090101
  28. IBUPROFEN [Suspect]
     Indication: OSTEOARTHRITIS
     Dates: start: 20110610
  29. BENICAR [Concomitant]
     Dates: start: 20110923

REACTIONS (3)
  - PULMONARY ARTERIAL HYPERTENSION [None]
  - PULMONARY HYPERTENSION [None]
  - HYPOTENSION [None]
